FAERS Safety Report 26185869 (Version 1)
Quarter: 2025Q4

REPORT INFORMATION
  Report Type: Spontaneous
  Country: US (occurrence: US)
  Receive Date: 20251222
  Receipt Date: 20251222
  Transmission Date: 20260117
  Serious: Yes (Hospitalization)
  Sender: CSL BEHRING
  Company Number: US-BEH-2025229665

PATIENT
  Sex: Male

DRUGS (4)
  1. ZEMAIRA [Suspect]
     Active Substance: .ALPHA.1-PROTEINASE INHIBITOR HUMAN
     Indication: Alpha-1 antitrypsin deficiency
     Dosage: 5182 MG, QW
     Route: 042
     Dates: start: 202508
  2. EPINEPHRINE [Concomitant]
     Active Substance: EPINEPHRINE
  3. REZDIFFRA [Concomitant]
     Active Substance: RESMETIROM
  4. SODIUM CHLORIDE [Concomitant]
     Active Substance: SODIUM CHLORIDE

REACTIONS (3)
  - Duodenal ulcer perforation [Unknown]
  - Abdominal pain [Unknown]
  - Weight decreased [Unknown]
